FAERS Safety Report 7310376-3 (Version None)
Quarter: 2011Q1

REPORT INFORMATION
  Report Type: 
  Country: None (occurrence: None)
  Receive Date: 20110210
  Receipt Date: 20110131
  Transmission Date: 20110831
  Serious: Yes (Hospitalization)
  Sender: FDA-Public Use
  Company Number: 2010AC000049

PATIENT
  Age: 86 Year
  Sex: Female

DRUGS (12)
  1. COUMADIN [Concomitant]
  2. VITAMIN D [Concomitant]
  3. VANCOMYCIN [Concomitant]
  4. AVAPRO [Concomitant]
  5. NORCO [Concomitant]
  6. DIGOXIN [Suspect]
     Indication: HEART RATE IRREGULAR
     Dosage: 0.25 MG, QD, PO
     Route: 048
     Dates: start: 20040101, end: 20080110
  7. BYSTOLIC [Concomitant]
  8. FUROSEMIDE [Concomitant]
  9. LIPITOR [Concomitant]
  10. NITROSTAT [Concomitant]
  11. TRAVATAN D [Concomitant]
  12. TECTURNA [Concomitant]

REACTIONS (27)
  - HEART RATE DECREASED [None]
  - WEIGHT INCREASED [None]
  - WEIGHT DECREASED [None]
  - FRACTURED SACRUM [None]
  - PAIN [None]
  - ECONOMIC PROBLEM [None]
  - VOMITING [None]
  - CELLULITIS [None]
  - ABSCESS [None]
  - MUSCLE SPASMS [None]
  - DIZZINESS [None]
  - OEDEMA PERIPHERAL [None]
  - MOBILITY DECREASED [None]
  - DIARRHOEA [None]
  - MUSCULOSKELETAL STIFFNESS [None]
  - FALL [None]
  - RHYTHM IDIOVENTRICULAR [None]
  - MULTIPLE INJURIES [None]
  - RENAL CANCER [None]
  - DIVERTICULUM [None]
  - NAUSEA [None]
  - CATARACT OPERATION [None]
  - BLOOD PRESSURE SYSTOLIC INCREASED [None]
  - ANXIETY [None]
  - BLOOD GLUCOSE INCREASED [None]
  - LIMB INJURY [None]
  - GAIT DISTURBANCE [None]
